FAERS Safety Report 7767314-9 (Version None)
Quarter: 2011Q3

REPORT INFORMATION
  Report Type: 
  Country: None (occurrence: None)
  Receive Date: 20110922
  Receipt Date: 20110325
  Transmission Date: 20111222
  Serious: Yes (Other)
  Sender: FDA-Public Use
  Company Number: US-ASTRAZENECA-2009SE24234

PATIENT
  Age: 616 Month
  Sex: Male
  Weight: 88.5 kg

DRUGS (19)
  1. HYDROCHLOROTHIAZIDE [Concomitant]
  2. KLOR-CON [Concomitant]
  3. SEROQUEL [Suspect]
     Indication: DEPRESSION
     Route: 048
     Dates: start: 20090101, end: 20110101
  4. SEROQUEL [Suspect]
     Route: 048
     Dates: start: 20110201
  5. BUSPIRONE HCL [Concomitant]
  6. HYDROXYZINE HYDROCHLORIDE [Concomitant]
  7. ASPIRIN [Concomitant]
  8. ADVAIR DISKUS 100/50 [Concomitant]
  9. COMBIVENT [Concomitant]
  10. SEROQUEL [Suspect]
     Indication: ANXIETY
     Route: 048
     Dates: start: 20090101, end: 20110101
  11. ZOLPIDEM [Concomitant]
  12. FENOFIBRATE [Concomitant]
  13. SEROQUEL [Suspect]
     Route: 048
     Dates: start: 20110201
  14. PRAZOSIN HCL [Concomitant]
     Indication: HYPERTENSION
  15. SEROQUEL [Suspect]
     Indication: BIPOLAR DISORDER
     Route: 048
     Dates: start: 20090101, end: 20110101
  16. SEROQUEL [Suspect]
     Route: 048
     Dates: start: 20110201
  17. PROAIR HFA [Concomitant]
  18. CITALOPRAM HYDROBROMIDE [Concomitant]
  19. ROPINIROLE [Concomitant]
     Indication: RESTLESS LEGS SYNDROME

REACTIONS (13)
  - SUICIDE ATTEMPT [None]
  - DIARRHOEA [None]
  - HALLUCINATION [None]
  - TREMOR [None]
  - ANXIETY [None]
  - HEADACHE [None]
  - VOMITING [None]
  - BLOOD CHOLESTEROL INCREASED [None]
  - AGGRESSION [None]
  - DRUG DOSE OMISSION [None]
  - VIOLENCE-RELATED SYMPTOM [None]
  - DEPRESSION [None]
  - NAUSEA [None]
